FAERS Safety Report 21787273 (Version 1)
Quarter: 2022Q4

REPORT INFORMATION
  Report Type: Report from Study
  Country: US (occurrence: US)
  Receive Date: 20221228
  Receipt Date: 20221228
  Transmission Date: 20230113
  Serious: No
  Sender: FDA-Public Use
  Company Number: US-ABBVIE-4213470

PATIENT
  Age: 61 Year
  Sex: Female

DRUGS (1)
  1. HUMIRA [Suspect]
     Active Substance: ADALIMUMAB
     Indication: Colitis ulcerative
     Dosage: CF PEN
     Route: 058

REACTIONS (5)
  - Viral infection [Recovering/Resolving]
  - Vomiting [Unknown]
  - Dizziness [Unknown]
  - Latent tuberculosis [Unknown]
  - Gait inability [Unknown]

NARRATIVE: CASE EVENT DATE: 20221116
